FAERS Safety Report 8489656-4 (Version None)
Quarter: 2012Q3

REPORT INFORMATION
  Report Type: 
  Country: None (occurrence: None)
  Receive Date: 20120705
  Receipt Date: 20120626
  Transmission Date: 20120928
  Serious: Yes (Other)
  Sender: FDA-Public Use
  Company Number: US-JNJFOC-20120516352

PATIENT
  Sex: Female

DRUGS (9)
  1. FOLIC ACID [Concomitant]
     Indication: VITAMIN SUPPLEMENTATION
     Route: 065
  2. METFORMIN HCL [Suspect]
     Indication: TYPE 2 DIABETES MELLITUS
     Route: 048
  3. TRAZODONE HCL [Suspect]
     Indication: DEPRESSION
     Route: 048
  4. TOPAMAX [Suspect]
     Indication: CONVULSION
     Route: 048
     Dates: start: 20060918, end: 20061218
  5. MIRTAZAPINE [Suspect]
     Indication: DEPRESSION
     Route: 048
  6. TOPAMAX [Suspect]
     Indication: MIGRAINE
     Route: 048
     Dates: start: 20060918, end: 20061218
  7. HYDROXYZINE [Suspect]
     Indication: ANXIETY
     Route: 048
  8. ZOLOFT [Suspect]
     Indication: ANTIDEPRESSANT THERAPY
     Route: 048
  9. RISEDRONATE SODIUM [Concomitant]
     Indication: VITAMIN SUPPLEMENTATION
     Route: 065

REACTIONS (3)
  - MATERNAL EXPOSURE DURING PREGNANCY [None]
  - OLIGOHYDRAMNIOS [None]
  - EMOTIONAL DISORDER [None]
